FAERS Safety Report 5802138-0 (Version None)
Quarter: 2008Q3

REPORT INFORMATION
  Report Type: 
  Country: None (occurrence: None)
  Receive Date: 20080707
  Receipt Date: 20080626
  Transmission Date: 20090109
  Serious: Yes (Death, Life-Threatening, Hospitalization)
  Sender: FDA-Public Use
  Company Number: HU-ROCHE-572815

PATIENT
  Sex: Female
  Weight: 90 kg

DRUGS (14)
  1. CAPECITABINE [Suspect]
     Dosage: 2 WEEKS TREATMENT AND ONE WEEKS REST
     Route: 048
     Dates: start: 20080514, end: 20080618
  2. METFORAL [Concomitant]
     Dates: start: 19980101
  3. SIMVASTATIN [Concomitant]
     Dates: start: 20070501
  4. TRITACE [Concomitant]
     Dates: start: 20060101
  5. FAMOTIDINE [Concomitant]
     Dates: start: 20060101
  6. ASPIRIN [Concomitant]
     Dates: start: 20060101
  7. FURON [Concomitant]
     Dates: start: 20060101
  8. ESPUMISAN [Concomitant]
     Dates: start: 20070201
  9. FRONTIN [Concomitant]
     Dates: start: 20080401
  10. BREXIN [Concomitant]
     Dosage: DOSE REPORTED AS 20
     Dates: start: 20060101
  11. ACTRAPID [Concomitant]
     Dosage: DOSE REPORTED AS 12
     Dates: start: 20060101
  12. INSULATARD [Concomitant]
     Dosage: DOSE REPORTED AS 30
     Dates: start: 20060101
  13. KALDYUM [Concomitant]
     Dates: start: 20060101
  14. FERRO-FOLGAMMA [Concomitant]
     Dates: start: 20080325

REACTIONS (2)
  - DEATH [None]
  - INTESTINAL OBSTRUCTION [None]
